FAERS Safety Report 5341961-6 (Version None)
Quarter: 2007Q2

REPORT INFORMATION
  Report Type: 
  Country: None (occurrence: None)
  Receive Date: 20070601
  Receipt Date: 20070522
  Transmission Date: 20071010
  Serious: Yes (Death, Other)
  Sender: FDA-Public Use
  Company Number: HQWYE942313DEC06

PATIENT
  Sex: Female
  Weight: 59.02 kg

DRUGS (17)
  1. EFFEXOR [Interacting]
  2. BEXTRA [Interacting]
  3. ZOLOFT [Interacting]
  4. PAXIL [Interacting]
  5. ZYPREXA [Interacting]
  6. VICODIN [Interacting]
  7. KLONOPIN [Interacting]
  8. DARVOCET-N 100 [Interacting]
  9. DEPAKOTE [Interacting]
  10. SEROQUEL [Interacting]
  11. LAMITOL [Suspect]
  12. TRIMOX [Suspect]
  13. TRAZODONE HCL [Suspect]
  14. OXCARBAZEPINE [Suspect]
  15. TIZANIDINE HCL [Suspect]
  16. TRAMADOL HCL [Suspect]
  17. VIOXX [Interacting]

REACTIONS (8)
  - CARDIAC DISORDER [None]
  - COMPLETED SUICIDE [None]
  - DRUG INTERACTION [None]
  - DRUG TOXICITY [None]
  - DRUG WITHDRAWAL SYNDROME [None]
  - HYPERSENSITIVITY [None]
  - PSYCHOTIC DISORDER [None]
  - SUICIDE ATTEMPT [None]
